FAERS Safety Report 18623239 (Version 9)
Quarter: 2022Q1

REPORT INFORMATION
  Report Type: Report from Study
  Country: US (occurrence: US)
  Receive Date: 20201216
  Receipt Date: 20220308
  Transmission Date: 20220423
  Serious: Yes (Hospitalization, Other)
  Sender: FDA-Public Use
  Company Number: US-TAKEDA-2020TUS045700

PATIENT
  Age: 84 Year
  Sex: Female
  Weight: 89 kg

DRUGS (69)
  1. .ALPHA.1-PROTEINASE INHIBITOR HUMAN [Suspect]
     Active Substance: .ALPHA.1-PROTEINASE INHIBITOR HUMAN
     Indication: Alpha-1 antitrypsin deficiency
     Dosage: 60 MILLIGRAM/KILOGRAM, 1/WEEK
     Route: 042
     Dates: start: 20100127, end: 20220208
  2. .ALPHA.1-PROTEINASE INHIBITOR HUMAN [Suspect]
     Active Substance: .ALPHA.1-PROTEINASE INHIBITOR HUMAN
     Indication: Alpha-1 antitrypsin deficiency
     Dosage: 60 MILLIGRAM/KILOGRAM, 1/WEEK
     Route: 042
     Dates: start: 20100127, end: 20220208
  3. .ALPHA.1-PROTEINASE INHIBITOR HUMAN [Suspect]
     Active Substance: .ALPHA.1-PROTEINASE INHIBITOR HUMAN
     Dosage: 5510 MILLIGRAM, 1/WEEK
     Route: 042
     Dates: start: 20100127
  4. .ALPHA.1-PROTEINASE INHIBITOR HUMAN [Suspect]
     Active Substance: .ALPHA.1-PROTEINASE INHIBITOR HUMAN
     Dosage: 5510 MILLIGRAM, 1/WEEK
     Route: 042
     Dates: start: 20100127
  5. .ALPHA.1-PROTEINASE INHIBITOR HUMAN [Suspect]
     Active Substance: .ALPHA.1-PROTEINASE INHIBITOR HUMAN
     Dosage: 5280 MILLIGRAM, 1/WEEK
     Route: 042
     Dates: start: 20100127
  6. .ALPHA.1-PROTEINASE INHIBITOR HUMAN [Suspect]
     Active Substance: .ALPHA.1-PROTEINASE INHIBITOR HUMAN
     Dosage: 5280 MILLIGRAM, 1/WEEK
     Route: 042
     Dates: start: 20100127
  7. .ALPHA.1-PROTEINASE INHIBITOR HUMAN [Suspect]
     Active Substance: .ALPHA.1-PROTEINASE INHIBITOR HUMAN
     Dosage: 5325 MILLIGRAM, 1/WEEK
     Route: 042
     Dates: start: 20100127
  8. .ALPHA.1-PROTEINASE INHIBITOR HUMAN [Suspect]
     Active Substance: .ALPHA.1-PROTEINASE INHIBITOR HUMAN
     Dosage: 5325 MILLIGRAM, 1/WEEK
     Route: 042
     Dates: start: 20100127
  9. .ALPHA.1-PROTEINASE INHIBITOR HUMAN [Suspect]
     Active Substance: .ALPHA.1-PROTEINASE INHIBITOR HUMAN
     Dosage: 5410 MILLIGRAM, 1/WEEK
     Route: 042
     Dates: start: 20100127
  10. .ALPHA.1-PROTEINASE INHIBITOR HUMAN [Suspect]
     Active Substance: .ALPHA.1-PROTEINASE INHIBITOR HUMAN
     Dosage: 5410 MILLIGRAM, 1/WEEK
     Route: 042
     Dates: start: 20100127
  11. .ALPHA.1-PROTEINASE INHIBITOR HUMAN [Suspect]
     Active Substance: .ALPHA.1-PROTEINASE INHIBITOR HUMAN
     Dosage: 5440 MILLIGRAM, 1/WEEK
     Route: 042
     Dates: start: 20100127
  12. .ALPHA.1-PROTEINASE INHIBITOR HUMAN [Suspect]
     Active Substance: .ALPHA.1-PROTEINASE INHIBITOR HUMAN
     Dosage: 5440 MILLIGRAM, 1/WEEK
     Route: 042
     Dates: start: 20100127
  13. .ALPHA.1-PROTEINASE INHIBITOR HUMAN [Suspect]
     Active Substance: .ALPHA.1-PROTEINASE INHIBITOR HUMAN
     Dosage: 60 MILLIGRAM/KILOGRAM, 1/WEEK
     Route: 042
     Dates: start: 20101019
  14. .ALPHA.1-PROTEINASE INHIBITOR HUMAN [Suspect]
     Active Substance: .ALPHA.1-PROTEINASE INHIBITOR HUMAN
     Dosage: 60 MILLIGRAM/KILOGRAM, 1/WEEK
     Route: 042
     Dates: start: 20101019
  15. HYDRALAZINE [Concomitant]
     Active Substance: HYDRALAZINE HYDROCHLORIDE
     Route: 065
  16. DOXYCYCLINE [Concomitant]
     Active Substance: DOXYCYCLINE
     Route: 065
  17. METOPROLOL SUCCINATE [Concomitant]
     Active Substance: METOPROLOL SUCCINATE
     Dosage: UNK
     Route: 065
  18. ACETAMINOPHEN\OXYCODONE HYDROCHLORIDE [Concomitant]
     Active Substance: ACETAMINOPHEN\OXYCODONE HYDROCHLORIDE
     Indication: Product used for unknown indication
     Route: 065
  19. DIPHENHYDRAMINE [Concomitant]
     Active Substance: DIPHENHYDRAMINE
     Dosage: UNK
     Route: 065
  20. HEPARIN [Concomitant]
     Active Substance: HEPARIN SODIUM
     Dosage: UNK
     Route: 065
  21. PREMARIN [Concomitant]
     Active Substance: ESTROGENS, CONJUGATED
     Route: 065
  22. SODIUM CHLORIDE [Concomitant]
     Active Substance: SODIUM CHLORIDE
     Dosage: UNK
     Route: 065
  23. OXYGEN [Concomitant]
     Active Substance: OXYGEN
     Dosage: UNK
     Route: 065
  24. EPINEPHRINE [Concomitant]
     Active Substance: EPINEPHRINE
     Route: 065
  25. PREDNISONE [Concomitant]
     Active Substance: PREDNISONE
     Route: 065
  26. LORATADINE [Concomitant]
     Active Substance: LORATADINE
     Dosage: UNK
     Route: 065
  27. CEFDINIR [Concomitant]
     Active Substance: CEFDINIR
     Route: 065
  28. PRAVASTATIN SODIUM [Concomitant]
     Active Substance: PRAVASTATIN SODIUM
     Route: 065
  29. PREGABALIN [Concomitant]
     Active Substance: PREGABALIN
     Route: 065
  30. FLUDROCORTISONE ACETATE [Concomitant]
     Active Substance: FLUDROCORTISONE ACETATE
     Route: 065
  31. PANTOPRAZOLE SODIUM [Concomitant]
     Active Substance: PANTOPRAZOLE SODIUM
     Route: 065
  32. DOXYCYCLINE [Concomitant]
     Active Substance: DOXYCYCLINE
  33. MAGNESIUM OXIDE [Concomitant]
     Active Substance: MAGNESIUM OXIDE
     Route: 065
  34. CETIRIZINE [Concomitant]
     Active Substance: CETIRIZINE HYDROCHLORIDE
     Route: 065
  35. CALCIUM CITRATE\CHOLECALCIFEROL [Concomitant]
     Active Substance: CALCIUM CITRATE\CHOLECALCIFEROL
     Route: 065
  36. VITAMIN D3 [Concomitant]
     Active Substance: CHOLECALCIFEROL
  37. ELIQUIS [Concomitant]
     Active Substance: APIXABAN
     Route: 065
  38. LYRICA [Concomitant]
     Active Substance: PREGABALIN
     Route: 065
  39. FUROSEMIDE [Concomitant]
     Active Substance: FUROSEMIDE
     Route: 065
  40. VITAMIN C [Concomitant]
     Active Substance: ASCORBIC ACID
     Route: 065
  41. IRON [Concomitant]
     Active Substance: IRON
     Route: 065
  42. VITAMIN E [Concomitant]
     Active Substance: .ALPHA.-TOCOPHEROL
     Route: 065
  43. ASPIRIN [Concomitant]
     Active Substance: ASPIRIN
     Route: 065
  44. POTASSIUM [Concomitant]
     Active Substance: POTASSIUM
     Route: 065
  45. CRANBERRY [Concomitant]
     Active Substance: CRANBERRY
     Route: 065
  46. ZOLOFT [Concomitant]
     Active Substance: SERTRALINE HYDROCHLORIDE
     Route: 065
  47. NITROSTAT [Concomitant]
     Active Substance: NITROGLYCERIN
     Route: 065
  48. LIDOCAINE HYDROCHLORIDE;PRILOCAINE [Concomitant]
     Route: 065
  49. LIDOCAINE [Concomitant]
     Active Substance: LIDOCAINE
     Route: 065
  50. ADVAIR HFA [Concomitant]
     Active Substance: FLUTICASONE PROPIONATE\SALMETEROL XINAFOATE
     Route: 065
  51. NARCAN [Concomitant]
     Active Substance: NALOXONE HYDROCHLORIDE
  52. NYSTOP [Concomitant]
     Active Substance: NYSTATIN
  53. NITROFURANTOIN [Concomitant]
     Active Substance: NITROFURANTOIN
  54. LEVOTHYROXINE [Concomitant]
     Active Substance: LEVOTHYROXINE
  55. ALBUTEROL SULFATE [Concomitant]
     Active Substance: ALBUTEROL SULFATE
  56. FLONASE [Concomitant]
     Active Substance: FLUTICASONE PROPIONATE
  57. LIDOCAINE AND PRILOCAINE [Concomitant]
     Active Substance: LIDOCAINE\PRILOCAINE
  58. CALOREN [Concomitant]
  59. DIETARY SUPPLEMENT [Concomitant]
     Active Substance: DIETARY SUPPLEMENT
  60. CHOLECALCIFEROL [Concomitant]
     Active Substance: CHOLECALCIFEROL
  61. AZITHROMYCIN [Concomitant]
     Active Substance: AZITHROMYCIN
     Route: 065
  62. SOLIFENACIN SUCCINATE [Concomitant]
     Active Substance: SOLIFENACIN SUCCINATE
     Dosage: UNK
     Route: 065
  63. PRAVASTATIN [Concomitant]
     Active Substance: PRAVASTATIN
  64. METOPROLOL [Concomitant]
     Active Substance: METOPROLOL
  65. FLUDROCORTISONE [Concomitant]
     Active Substance: FLUDROCORTISONE
  66. MAGNESIUM [Concomitant]
     Active Substance: MAGNESIUM
  67. PANTOPRAZOLE [Concomitant]
     Active Substance: PANTOPRAZOLE
  68. VITAMIN D2 [Concomitant]
     Active Substance: ERGOCALCIFEROL
  69. FLUTICASONE [Concomitant]
     Active Substance: FLUTICASONE

REACTIONS (18)
  - Pneumonia [Unknown]
  - COVID-19 [Unknown]
  - Urinary tract infection [Not Recovered/Not Resolved]
  - Infusion related reaction [Unknown]
  - Discomfort [Unknown]
  - Dehydration [Unknown]
  - Illness [Not Recovered/Not Resolved]
  - Sinusitis [Unknown]
  - Chest discomfort [Unknown]
  - Speech disorder [Unknown]
  - Back pain [Unknown]
  - Rash [Unknown]
  - Pruritus [Unknown]
  - Malaise [Unknown]
  - Vomiting [Unknown]
  - Cough [Unknown]
  - Dyspnoea [Unknown]
  - Fatigue [Unknown]

NARRATIVE: CASE EVENT DATE: 20210427
